FAERS Safety Report 4895050-5 (Version None)
Quarter: 2006Q1

REPORT INFORMATION
  Report Type: 
  Country: None (occurrence: None)
  Receive Date: 20060130
  Receipt Date: 20051130
  Transmission Date: 20060701
  Serious: No
  Sender: FDA-Public Use
  Company Number: US-BRISTOL-MYERS SQUIBB COMPANY-13200282

PATIENT
  Age: 27 Year
  Sex: Female
  Weight: 86 kg

DRUGS (2)
  1. METFORMIN HCL [Suspect]
     Indication: POLYCYSTIC OVARIES
     Dates: start: 20040801, end: 20050101
  2. PRENATAL VITAMINS [Concomitant]

REACTIONS (2)
  - BLOOD FOLATE DECREASED [None]
  - PREGNANCY [None]
